FAERS Safety Report 5942197-8 (Version None)
Quarter: 2008Q4

REPORT INFORMATION
  Report Type: 
  Country: None (occurrence: None)
  Receive Date: 20081104
  Receipt Date: 20081104
  Transmission Date: 20090506
  Serious: Yes (Death)
  Sender: FDA-Public Use
  Company Number: None

PATIENT
  Sex: Female
  Weight: 0.87 kg

DRUGS (17)
  1. MORPHINE [Suspect]
     Indication: PAIN
     Dosage: 0.005 MG/KG/HOUR
     Dates: start: 20081008
  2. INULIN [Suspect]
     Indication: GLOMERULAR FILTRATION RATE
     Dosage: 0.6 ML/KG/HOUR
     Dates: start: 20081008
  3. SURVANTA [Concomitant]
  4. VITAMIN [Concomitant]
  5. CAFFEINE CITRATED [Concomitant]
  6. FLUCONAZOLE [Concomitant]
  7. SODIUM BICARB [Concomitant]
  8. IBUPROFEN TABLETS [Concomitant]
  9. FENTANYL-25 [Concomitant]
  10. VITAMIN A [Concomitant]
  11. AMPICILLIN [Concomitant]
  12. GENTAMICIN [Concomitant]
  13. LASIX [Concomitant]
  14. BACITRACIN [Concomitant]
  15. LASIX [Concomitant]
  16. AMPICILLIN [Concomitant]
  17. MEROPENEM [Concomitant]

REACTIONS (2)
  - GASTROINTESTINAL NECROSIS [None]
  - RESPIRATORY FAILURE [None]
